FAERS Safety Report 9647685 (Version 1)
Quarter: 2013Q4

REPORT INFORMATION
  Report Type: Spontaneous
  Country: US (occurrence: US)
  Receive Date: 20131028
  Receipt Date: 20131028
  Transmission Date: 20140711
  Serious: Yes (Other)
  Sender: FDA-Public Use
  Company Number: US-JNJFOC-20131011918

PATIENT
  Age: 62 Year
  Sex: Male

DRUGS (13)
  1. XARELTO [Suspect]
     Indication: CEREBROVASCULAR ACCIDENT PROPHYLAXIS
     Route: 048
     Dates: start: 201307
  2. XARELTO [Suspect]
     Indication: ATRIAL FIBRILLATION
     Route: 048
     Dates: start: 201307
  3. AVODART [Concomitant]
     Indication: PROSTATIC DISORDER
     Route: 065
  4. BENICAR HCT [Concomitant]
     Indication: HYPERTENSION
     Route: 065
  5. DOXYCYCLINE [Concomitant]
     Route: 065
  6. DUONEB [Concomitant]
     Route: 065
  7. FLOMAX [Concomitant]
     Route: 065
  8. FLONASE [Concomitant]
     Route: 065
  9. GLIMEPIRIDE [Concomitant]
     Indication: DIABETES MELLITUS
     Route: 065
  10. LANTUS [Concomitant]
     Indication: DIABETES MELLITUS
     Route: 065
  11. NOVOLIN R [Concomitant]
     Indication: DIABETES MELLITUS
     Route: 065
  12. PRAVASTATIN [Concomitant]
     Indication: BLOOD CHOLESTEROL
     Route: 065
  13. PREDNISONE [Concomitant]
     Route: 065

REACTIONS (1)
  - Cystoscopy [Not Recovered/Not Resolved]
